FAERS Safety Report 8232832-6 (Version None)
Quarter: 2012Q1

REPORT INFORMATION
  Report Type: 
  Country: None (occurrence: None)
  Receive Date: 20120323
  Receipt Date: 20090826
  Transmission Date: 20120608
  Serious: Yes (Hospitalization)
  Sender: FDA-Public Use
  Company Number: PHHY2009SG37883

PATIENT
  Sex: Female

DRUGS (3)
  1. GLEEVEC [Suspect]
     Indication: CHRONIC MYELOID LEUKAEMIA
     Dosage: 400 MG
     Dates: start: 20070412
  2. GLEEVEC [Suspect]
     Dosage: 300-400 MG DAILY
     Route: 048
  3. GLEEVEC [Suspect]
     Dosage: 300 MG
     Dates: end: 20090813

REACTIONS (5)
  - SPLENOMEGALY [None]
  - NEOPLASM MALIGNANT [None]
  - DRUG INEFFECTIVE [None]
  - PANCYTOPENIA [None]
  - CHRONIC MYELOID LEUKAEMIA [None]
